FAERS Safety Report 4618212-0 (Version None)
Quarter: 2005Q1

REPORT INFORMATION
  Report Type: 
  Country: None (occurrence: None)
  Receive Date: 20050323
  Receipt Date: 20050310
  Transmission Date: 20050727
  Serious: Yes (Other)
  Sender: FDA-Public Use
  Company Number: PHHO2004JP15812

PATIENT
  Age: 78 Year
  Sex: Male
  Weight: 74.027 kg

DRUGS (3)
  1. VISUDYNE [Suspect]
     Indication: MACULAR DEGENERATION
     Dosage: 11.3 MD DAILY IV
     Route: 042
     Dates: start: 20041002, end: 20041002
  2. TAKEPRON [Concomitant]
  3. SELBEX [Concomitant]

REACTIONS (5)
  - DETACHMENT OF RETINAL PIGMENT EPITHELIUM [None]
  - DISEASE PROGRESSION [None]
  - RETINAL TEAR [None]
  - VISUAL ACUITY REDUCED [None]
  - VISUAL DISTURBANCE [None]
